FAERS Safety Report 9464635 (Version 1)
Quarter: 2013Q3

REPORT INFORMATION
  Report Type: Spontaneous
  Country: US (occurrence: US)
  Receive Date: 20130819
  Receipt Date: 20130819
  Transmission Date: 20140515
  Serious: No
  Sender: FDA-Public Use
  Company Number: US-PFIZER INC-2013238142

PATIENT
  Age: 12 Year
  Sex: Male

DRUGS (3)
  1. QUILLIVANT XR [Suspect]
     Indication: ATTENTION DEFICIT/HYPERACTIVITY DISORDER
     Dosage: UNK
  2. QUILLIVANT XR [Suspect]
     Dosage: 4 ML, UNK
  3. QUILLIVANT XR [Suspect]
     Dosage: 2.4 ML, UNK

REACTIONS (3)
  - Product reconstitution issue [Unknown]
  - Circumstance or information capable of leading to medication error [Unknown]
  - Feeling abnormal [Unknown]
